FAERS Safety Report 7029545-5 (Version None)
Quarter: 2010Q4

REPORT INFORMATION
  Report Type: 
  Country: None (occurrence: None)
  Receive Date: 20101005
  Receipt Date: 20101005
  Transmission Date: 20110411
  Serious: Yes (Hospitalization)
  Sender: FDA-Public Use
  Company Number: BR-ABBOTT-10P-020-0662756-00

PATIENT
  Sex: Female
  Weight: 59 kg

DRUGS (5)
  1. HUMIRA [Suspect]
     Indication: CROHN'S DISEASE
     Dosage: INDUCTION DOSE: 160MG 80MG 14DAYS
     Route: 058
     Dates: start: 20100407, end: 20100803
  2. HUMIRA [Suspect]
  3. ALPRAZOLAM [Concomitant]
     Indication: ANTIDEPRESSANT THERAPY
     Route: 048
  4. VENLAFAXIN [Concomitant]
     Indication: ANTIDEPRESSANT THERAPY
     Route: 048
  5. PREDNISONE [Concomitant]
     Indication: CROHN'S DISEASE
     Route: 048
     Dates: start: 19970101

REACTIONS (4)
  - ABDOMINAL PAIN [None]
  - DIARRHOEA [None]
  - DRUG INEFFECTIVE [None]
  - INTESTINAL STENOSIS [None]
